FAERS Safety Report 16759027 (Version 1)
Quarter: 2019Q4

REPORT INFORMATION
  Report Type: Spontaneous
  Country: US (occurrence: US)
  Receive Date: 20190829
  Receipt Date: 20190829
  Transmission Date: 20200122
  Serious: Yes (Hospitalization)
  Sender: FDA-Public Use
  Company Number: None

PATIENT
  Age: 84 Year
  Sex: Female
  Weight: 66.4 kg

DRUGS (2)
  1. DOXORUBICIN HYDROCHLORIDE LIPOSOME [Suspect]
     Active Substance: DOXORUBICIN HYDROCHLORIDE
     Indication: ANGIOSARCOMA
     Dosage: ?          OTHER FREQUENCY:EVERY 3 WEEKS;?
     Route: 042
     Dates: start: 20190807, end: 20190828
  2. DOXORUBICIN HYDROCHLORIDE LIPOSOME [Suspect]
     Active Substance: DOXORUBICIN HYDROCHLORIDE
     Indication: ANGIOSARCOMA
     Dosage: ?          OTHER FREQUENCY:EVERY 21 DAYS;?
     Route: 042
     Dates: start: 20190807, end: 20190828

REACTIONS (5)
  - Back pain [None]
  - Abdominal pain lower [None]
  - Anxiety [None]
  - Infusion related reaction [None]
  - Dyspnoea [None]

NARRATIVE: CASE EVENT DATE: 20190828
